FAERS Safety Report 6051755-4 (Version None)
Quarter: 2009Q1

REPORT INFORMATION
  Report Type: 
  Country: None (occurrence: None)
  Receive Date: 20090121
  Receipt Date: 20090121
  Transmission Date: 20090719
  Serious: Yes (Hospitalization)
  Sender: FDA-Public Use
  Company Number: None

PATIENT
  Age: 32 Year
  Sex: Female
  Weight: 67.1324 kg

DRUGS (2)
  1. CYMBALTA [Suspect]
     Indication: PAIN
     Dosage: 120MG ONCE DAILY PO
     Route: 048
  2. CYMBALTA [Suspect]
     Indication: STRESS
     Dosage: 120MG ONCE DAILY PO
     Route: 048

REACTIONS (12)
  - ABNORMAL BEHAVIOUR [None]
  - AGITATION [None]
  - BLOOD PRESSURE INCREASED [None]
  - FATIGUE [None]
  - HEART RATE INCREASED [None]
  - HYPERSOMNIA [None]
  - INSOMNIA [None]
  - IRRITABILITY [None]
  - LOSS OF EMPLOYMENT [None]
  - NIGHTMARE [None]
  - PLEURISY [None]
  - RESTLESSNESS [None]
